FAERS Safety Report 4643411-1 (Version None)
Quarter: 2005Q2

REPORT INFORMATION
  Report Type: 
  Country: None (occurrence: None)
  Receive Date: 20050324
  Receipt Date: 20050201
  Transmission Date: 20051028
  Serious: Yes (Death, Hospitalization)
  Sender: FDA-Public Use
  Company Number: 212168

PATIENT
  Age: 56 Year
  Sex: Female
  Weight: 51.7 kg

DRUGS (3)
  1. AVASTIN [Suspect]
     Indication: COLON CANCER METASTATIC
     Dosage: 330 MG,Q2W,INTRAVENOUS
     Route: 042
     Dates: start: 20040416, end: 20041221
  2. FLUOROURACIL [Concomitant]
  3. LEUCOVORIN CALCIUM [Concomitant]

REACTIONS (2)
  - INTESTINAL PERFORATION [None]
  - MUSCLE ABSCESS [None]
